FAERS Safety Report 7135956-X (Version None)
Quarter: 2010Q4

REPORT INFORMATION
  Report Type: 
  Country: None (occurrence: None)
  Receive Date: 20101204
  Receipt Date: 20101202
  Transmission Date: 20110411
  Serious: Yes (Hospitalization)
  Sender: FDA-Public Use
  Company Number: TR-BAYER-2010-001023

PATIENT
  Sex: Female

DRUGS (1)
  1. MINOSET PLUS [Suspect]
     Indication: HEADACHE
     Dosage: UNK
     Route: 048
     Dates: start: 20101126

REACTIONS (1)
  - HYPERSENSITIVITY [None]
